FAERS Safety Report 7256807-9 (Version None)
Quarter: 2011Q1

REPORT INFORMATION
  Report Type: 
  Country: None (occurrence: None)
  Receive Date: 20110129
  Receipt Date: 20100615
  Transmission Date: 20110831
  Serious: Yes (Hospitalization)
  Sender: FDA-Public Use
  Company Number: US-ABBOTT-10P-163-0652150-00

PATIENT
  Sex: Female
  Weight: 83.082 kg

DRUGS (13)
  1. ASPIRIN [Concomitant]
     Indication: PRODUCT USED FOR UNKNOWN INDICATION
  2. ZINC [Concomitant]
     Indication: MINERAL SUPPLEMENTATION
  3. VITAMIN B-12 [Concomitant]
     Indication: VITAMIN SUPPLEMENTATION
  4. TRICOR [Concomitant]
     Indication: BLOOD CHOLESTEROL INCREASED
  5. VITAMIN B1 TAB [Concomitant]
     Indication: VITAMIN SUPPLEMENTATION
  6. ALLOPURINOL [Concomitant]
     Indication: PRODUCT USED FOR UNKNOWN INDICATION
  7. CREON [Concomitant]
     Indication: GASTRIC DISORDER
  8. OMEPRAZOLE [Concomitant]
     Indication: PRODUCT USED FOR UNKNOWN INDICATION
  9. FOLIC ACID [Concomitant]
     Indication: PRODUCT USED FOR UNKNOWN INDICATION
  10. PAROXETINE HCL [Concomitant]
     Indication: DEPRESSION
  11. HUMIRA [Suspect]
     Indication: COLITIS
     Dates: start: 20080101
  12. IRON [Concomitant]
     Indication: MINERAL SUPPLEMENTATION
  13. FLUZONE [Concomitant]
     Indication: INFLUENZA IMMUNISATION
     Dates: start: 20090401

REACTIONS (7)
  - ILL-DEFINED DISORDER [None]
  - DEHYDRATION [None]
  - DIARRHOEA [None]
  - MUSCLE SPASMS [None]
  - TUBERCULOSIS [None]
  - DYSPNOEA [None]
  - HYPOAESTHESIA [None]
